FAERS Safety Report 9620989 (Version 1)
Quarter: 2013Q4

REPORT INFORMATION
  Report Type: Report from Study
  Country: US (occurrence: US)
  Receive Date: 20131015
  Receipt Date: 20131015
  Transmission Date: 20140711
  Serious: Yes (Other)
  Sender: FDA-Public Use
  Company Number: PHEH2013US021088

PATIENT
  Sex: Female

DRUGS (2)
  1. AFINITOR [Suspect]
     Indication: BREAST CANCER
     Dosage: 10 MG, QD
     Route: 048
     Dates: start: 201307
  2. AFINITOR [Suspect]
     Dosage: 5 MG, QD
     Route: 048

REACTIONS (8)
  - Fall [Unknown]
  - Gait disturbance [Unknown]
  - Malaise [Unknown]
  - Confusional state [Unknown]
  - Blister [Unknown]
  - Stomatitis [Unknown]
  - Diarrhoea [Unknown]
  - Nausea [Unknown]
